FAERS Safety Report 14198579 (Version 1)
Quarter: 2017Q4

REPORT INFORMATION
  Report Type: Report from Study
  Country: US (occurrence: US)
  Receive Date: 20171117
  Receipt Date: 20171117
  Transmission Date: 20180321
  Serious: Yes (Death, Life-Threatening, Other)
  Sender: FDA-Public Use
  Company Number: US-ROCHE-1933891

PATIENT

DRUGS (3)
  1. HEPARIN [Concomitant]
     Active Substance: HEPARIN SODIUM
     Dosage: FOLLOWED BY AN INFUSION OF 1000 U PER HOUR
     Route: 040
  2. ALTEPLASE. [Suspect]
     Active Substance: ALTEPLASE
     Indication: ACUTE MYOCARDIAL INFARCTION
     Dosage: FOLLOWED BY THE INFUSION OF 0.75 MG/KG/BODY WEIGHT OVER A 30-MIN PERIOD (NOT TO EXCEED 50 MG) AND TH
     Route: 040
  3. ASPIRIN. [Concomitant]
     Active Substance: ASPIRIN
     Dosage: GIVEN AT 160 MG UPON ENROLMENT AND AT 160 TO 325 MG DAILY THEREAFTER
     Route: 065

REACTIONS (22)
  - Mitral valve incompetence [Unknown]
  - Haemorrhagic stroke [Unknown]
  - Cardiac failure congestive [Unknown]
  - Haemorrhage [Unknown]
  - Ventricular septal defect acquired [Unknown]
  - Atrioventricular block second degree [Unknown]
  - Cardiogenic shock [Unknown]
  - Cardiac tamponade [Unknown]
  - Myocardial rupture [Unknown]
  - Cerebrovascular accident [Fatal]
  - Ventricular tachycardia [Unknown]
  - Cerebral haemorrhage [Unknown]
  - Ischaemia [Unknown]
  - Atrial fibrillation [Unknown]
  - Anaphylactic reaction [Unknown]
  - Atrioventricular block complete [Unknown]
  - Ischaemic stroke [Unknown]
  - Pulmonary embolism [Unknown]
  - Myocardial infarction [Unknown]
  - Cardiac arrest [Unknown]
  - Pulseless electrical activity [Unknown]
  - Haemorrhage intracranial [Unknown]
